FAERS Safety Report 21171286 (Version 5)
Quarter: 2025Q1

REPORT INFORMATION
  Report Type: Report from Study
  Country: US (occurrence: US)
  Receive Date: 20220804
  Receipt Date: 20250314
  Transmission Date: 20250409
  Serious: Yes (Hospitalization, Other)
  Sender: ABBVIE
  Company Number: US-ABBVIE-22K-163-4467499-00

PATIENT
  Age: 77 Year
  Sex: Female

DRUGS (3)
  1. HUMIRA [Suspect]
     Active Substance: ADALIMUMAB
     Indication: Psoriasis
     Dosage: CITRATE FREE FORM STRENGTH: 40 MILLIGRAM
     Route: 058
     Dates: start: 20230224
  2. HUMIRA [Suspect]
     Active Substance: ADALIMUMAB
     Route: 058
     Dates: start: 20220809
  3. HUMIRA [Suspect]
     Active Substance: ADALIMUMAB
     Route: 058
     Dates: start: 20180101

REACTIONS (11)
  - Trigger finger [Recovering/Resolving]
  - Trismus [Recovering/Resolving]
  - Cervical vertebral fracture [Recovering/Resolving]
  - Cyst [Recovering/Resolving]
  - Fall [Recovering/Resolving]
  - Stress fracture [Recovering/Resolving]
  - Mobility decreased [Not Recovered/Not Resolved]
  - Rotator cuff syndrome [Unknown]
  - Injury [Recovering/Resolving]
  - Fall [Recovering/Resolving]
  - COVID-19 [Recovering/Resolving]

NARRATIVE: CASE EVENT DATE: 20220701
